FAERS Safety Report 6510491-8 (Version None)
Quarter: 2009Q4

REPORT INFORMATION
  Report Type: 
  Country: None (occurrence: None)
  Receive Date: 20091222
  Receipt Date: 20091218
  Transmission Date: 20100525
  Serious: Yes (Life-Threatening, Hospitalization)
  Sender: FDA-Public Use
  Company Number: ES-AMGEN-UK381436

PATIENT
  Sex: Female

DRUGS (2)
  1. PANITUMUMAB [Suspect]
     Indication: COLORECTAL CANCER
     Route: 042
     Dates: start: 20090519, end: 20090825
  2. LEVOTHROID [Concomitant]
     Route: 048
     Dates: start: 20090821, end: 20090829

REACTIONS (1)
  - DIARRHOEA [None]
